FAERS Safety Report 18941435 (Version 1)
Quarter: 2021Q1

REPORT INFORMATION
  Report Type: Spontaneous
  Country: US (occurrence: US)
  Receive Date: 20210225
  Receipt Date: 20210225
  Transmission Date: 20210420
  Serious: No
  Sender: FDA-Public Use
  Company Number: US-CURIUM-1992000073

PATIENT
  Age: 58 Year

DRUGS (1)
  1. ULTRATAG RBC [Suspect]
     Active Substance: TECHNETIUM TC-99M RED BLOOD CELLS

REACTIONS (2)
  - Dyspnoea [Unknown]
  - Multiple gated acquisition scan abnormal [Recovered/Resolved]

NARRATIVE: CASE EVENT DATE: 19920601
